FAERS Safety Report 21683211 (Version 1)
Quarter: 2022Q4

REPORT INFORMATION
  Report Type: Spontaneous
  Country: HK (occurrence: HK)
  Receive Date: 20221205
  Receipt Date: 20221205
  Transmission Date: 20230113
  Serious: Yes (Other)
  Sender: FDA-Public Use
  Company Number: HK-PFIZER INC-202201337664

PATIENT
  Age: 65 Year
  Sex: Male

DRUGS (1)
  1. PAXLOVID [Suspect]
     Active Substance: NIRMATRELVIR\RITONAVIR
     Indication: COVID-19 treatment
     Dosage: UNK
     Dates: start: 202211, end: 202211

REACTIONS (5)
  - Deafness unilateral [Unknown]
  - Decreased appetite [Unknown]
  - Headache [Unknown]
  - Bone pain [Unknown]
  - Dizziness [Unknown]

NARRATIVE: CASE EVENT DATE: 20221101
